FAERS Safety Report 7215262-5 (Version None)
Quarter: 2011Q1

REPORT INFORMATION
  Report Type: 
  Country: None (occurrence: None)
  Receive Date: 20110107
  Receipt Date: 20110104
  Transmission Date: 20110831
  Serious: Yes (Death)
  Sender: FDA-Public Use
  Company Number: US-KINGPHARMUSA00001-K201100012

PATIENT
  Age: 59 Year
  Sex: Female

DRUGS (10)
  1. AMLODIPINE [Suspect]
     Indication: COMPLETED SUICIDE
     Dosage: UNK
     Route: 048
  2. FENOFIBRATE [Suspect]
     Indication: COMPLETED SUICIDE
     Dosage: UNK
     Route: 048
  3. EZETIMIBE W/SIMVASTATIN [Suspect]
     Indication: COMPLETED SUICIDE
     Dosage: UNK
     Route: 048
  4. LEVOXYL [Suspect]
     Indication: COMPLETED SUICIDE
     Dosage: UNK
     Route: 048
  5. CLONIDINE [Suspect]
     Indication: COMPLETED SUICIDE
     Dosage: UNK
     Route: 048
  6. TRANDOLAPRIL W/VERAPAMIL [Suspect]
     Indication: COMPLETED SUICIDE
     Dosage: UNK
     Route: 048
  7. ACETAMINOPHEN W/HYDROCODONE [Suspect]
     Indication: COMPLETED SUICIDE
     Dosage: UNK
     Route: 048
  8. SERTRALINE [Suspect]
     Indication: COMPLETED SUICIDE
     Dosage: UNK
     Route: 048
  9. PROMETHAZINE [Suspect]
     Indication: COMPLETED SUICIDE
     Dosage: UNK
     Route: 048
  10. LAMOTRIGINE [Suspect]
     Indication: COMPLETED SUICIDE
     Dosage: UNK
     Route: 048

REACTIONS (1)
  - COMPLETED SUICIDE [None]
